FAERS Safety Report 7250180-8 (Version None)
Quarter: 2011Q1

REPORT INFORMATION
  Report Type: 
  Country: None (occurrence: None)
  Receive Date: 20110128
  Receipt Date: 20110113
  Transmission Date: 20110831
  Serious: Yes (Life-Threatening, Hospitalization, Other)
  Sender: FDA-Public Use
  Company Number: US-BAYER-2011-003503

PATIENT
  Sex: Male

DRUGS (1)
  1. INTERFERON BETA-1B [Suspect]
     Indication: RELAPSING-REMITTING MULTIPLE SCLEROSIS
     Dosage: 8 MIU, QOD
     Dates: start: 20060728, end: 20101201

REACTIONS (8)
  - MOBILITY DECREASED [None]
  - PYREXIA [None]
  - CONSTIPATION [None]
  - INJECTION SITE CELLULITIS [None]
  - MULTI-ORGAN FAILURE [None]
  - CHILLS [None]
  - TREMOR [None]
  - URINARY RETENTION [None]
